FAERS Safety Report 19456774 (Version 1)
Quarter: 2021Q2

REPORT INFORMATION
  Report Type: Other
  Country: US (occurrence: US)
  Receive Date: 20210624
  Receipt Date: 20210624
  Transmission Date: 20210717
  Serious: Yes (Other)
  Sender: FDA-Public Use
  Company Number: US-ROCHE-2852640

PATIENT

DRUGS (4)
  1. VINORELBINE [Suspect]
     Active Substance: VINORELBINE TARTRATE
     Indication: TRIPLE NEGATIVE BREAST CANCER
     Dosage: 25 MG PER SQUARE METER INTRAVENOUSLY ON DAY 1 WEEKLY
     Route: 042
  2. GEMCITABINE. [Suspect]
     Active Substance: GEMCITABINE
     Indication: TRIPLE NEGATIVE BREAST CANCER
     Dosage: 800 TO 1200 MG PER SQUARE METER INTRAVENOUSLY ON DAYS 1, 8, AND 15 OF A 28?DAY CYCLE
     Route: 042
  3. CAPECITABINE. [Suspect]
     Active Substance: CAPECITABINE
     Indication: TRIPLE NEGATIVE BREAST CANCER
     Dosage: 1000 TO 1250 MG PER SQUARE METER ORALLY TWICE DAILY ON DAYS 1 TO 14 OF A 21?DAY CYCLE
     Route: 048
  4. ERIBULIN [Suspect]
     Active Substance: ERIBULIN
     Indication: TRIPLE NEGATIVE BREAST CANCER
     Dosage: (1.4 MG PER SQUARE METER OF BODY?SURFACE AREA OR 1.23 MG PER SQUARE METERINTRAVENOUSLY ON DAYS 1 AND
     Route: 042

REACTIONS (31)
  - Leukopenia [Unknown]
  - Febrile neutropenia [Unknown]
  - Neuropathy peripheral [Unknown]
  - Thrombocytopenia [Unknown]
  - Urinary tract infection [Unknown]
  - Hypokalaemia [Unknown]
  - Alanine aminotransferase increased [Unknown]
  - Angiopathy [Unknown]
  - Breast disorder [Unknown]
  - Anaemia [Unknown]
  - Abdominal pain [Unknown]
  - Pyrexia [Unknown]
  - Constipation [Unknown]
  - Dyspnoea [Unknown]
  - Oedema peripheral [Unknown]
  - Diarrhoea [Unknown]
  - Nausea [Unknown]
  - Respiratory disorder [Unknown]
  - Aspartate aminotransferase increased [Unknown]
  - Reproductive tract disorder [Unknown]
  - Neutropenia [Unknown]
  - Peripheral sensory neuropathy [Unknown]
  - Vomiting [Unknown]
  - Fatigue [Unknown]
  - Back pain [Unknown]
  - Headache [Unknown]
  - Cough [Unknown]
  - Injury [Unknown]
  - Rash [Unknown]
  - Asthenia [Unknown]
  - Decreased appetite [Unknown]
